FAERS Safety Report 8433292-2 (Version None)
Quarter: 2012Q2

REPORT INFORMATION
  Report Type: 
  Country: None (occurrence: None)
  Receive Date: 20120613
  Receipt Date: 20120606
  Transmission Date: 20120825
  Serious: Yes (Hospitalization, Other)
  Sender: FDA-Public Use
  Company Number: DE-ROCHE-623813

PATIENT
  Sex: Male
  Weight: 65 kg

DRUGS (5)
  1. AVASTIN [Suspect]
     Indication: COLON CANCER
     Route: 042
  2. XELODA [Suspect]
     Indication: COLON CANCER
     Route: 048
  3. ASPIRIN [Concomitant]
     Indication: CORONARY ARTERY DISEASE
     Route: 048
  4. BISOPROLOL FUMARATE [Concomitant]
     Indication: HYPERTENSION
     Route: 048
  5. XELODA [Suspect]
     Dosage: CYCLES 1-3
     Route: 048

REACTIONS (8)
  - DYSPNOEA [None]
  - INSOMNIA [None]
  - CARDIAC DISORDER [None]
  - NAUSEA [None]
  - DISEASE PROGRESSION [None]
  - CHEST DISCOMFORT [None]
  - GENERAL PHYSICAL HEALTH DETERIORATION [None]
  - VOMITING [None]
